FAERS Safety Report 7024352-1 (Version None)
Quarter: 2010Q3

REPORT INFORMATION
  Report Type: 
  Country: None (occurrence: None)
  Receive Date: 20100920
  Receipt Date: 20100603
  Transmission Date: 20110219
  Serious: Yes (Hospitalization)
  Sender: FDA-Public Use
  Company Number: 2010S1000240

PATIENT
  Age: 20 Year
  Sex: Male
  Weight: 122.4712 kg

DRUGS (1)
  1. VENLAFAXINE HCL EXTENDED-RELEASE [Suspect]
     Indication: DEPRESSION
     Dosage: 37.5 MG;QD;PO
     Route: 048
     Dates: start: 20100101

REACTIONS (3)
  - BACTERIAL INFECTION [None]
  - DRUG INEFFECTIVE [None]
  - SUICIDE ATTEMPT [None]
